FAERS Safety Report 10133772 (Version 2)
Quarter: 2014Q2

REPORT INFORMATION
  Report Type: Spontaneous
  Country: US (occurrence: US)
  Receive Date: 20140428
  Receipt Date: 20140428
  Transmission Date: 20141212
  Serious: No
  Sender: FDA-Public Use
  Company Number: US-ASTRAZENECA-2007UW01350

PATIENT
  Age: 54 Year
  Sex: Male
  Weight: 136.1 kg

DRUGS (4)
  1. PULMICORT FLEXHALER [Suspect]
     Indication: ASTHMA
     Dosage: 1 PUFF DAILY
     Route: 055
  2. PULMICORT FLEXHALER [Suspect]
     Indication: ASTHMA
     Dosage: BEGAN USING 10 YEARS AGO
     Route: 055
  3. PULMICORT FLEXHALER [Suspect]
     Indication: ASTHMA
     Dosage: 180 MCG TWO  PUFFS DAILY
     Route: 055
  4. RESCUE INHALER [Concomitant]

REACTIONS (7)
  - Wheezing [Unknown]
  - Asthma [Unknown]
  - Sleep disorder due to general medical condition, insomnia type [Unknown]
  - Dyspnoea [Unknown]
  - Breath sounds abnormal [Unknown]
  - Respiration abnormal [Unknown]
  - Cough [Unknown]
